FAERS Safety Report 19009616 (Version 1)
Quarter: 2021Q1

REPORT INFORMATION
  Report Type: Spontaneous
  Country: US (occurrence: US)
  Receive Date: 20210315
  Receipt Date: 20210315
  Transmission Date: 20210420
  Serious: No
  Sender: FDA-Public Use
  Company Number: US-BAYER-2021-104711

PATIENT
  Age: 49 Year
  Sex: Female

DRUGS (1)
  1. GADAVIST [Suspect]
     Active Substance: GADOBUTROL
     Indication: MAGNETIC RESONANCE IMAGING BRAIN
     Dosage: 7.5 ML, ONCE
     Route: 042
     Dates: start: 20210312, end: 20210312

REACTIONS (2)
  - Contrast media allergy [None]
  - Pruritus [None]

NARRATIVE: CASE EVENT DATE: 20210312
